FAERS Safety Report 4782416-7 (Version None)
Quarter: 2005Q3

REPORT INFORMATION
  Report Type: 
  Country: None (occurrence: None)
  Receive Date: 20050929
  Receipt Date: 20040905
  Transmission Date: 20060218
  Serious: No
  Sender: FDA-Public Use
  Company Number: US-GLAXOSMITHKLINE-A0524868A

PATIENT
  Age: 83 Year
  Sex: Male
  Weight: 91.8 kg

DRUGS (11)
  1. COREG [Suspect]
     Route: 048
     Dates: start: 20040422
  2. NEURONTIN [Concomitant]
     Indication: NEUROPATHY
     Dosage: 300MG PER DAY
     Route: 065
     Dates: start: 19980101
  3. CAPTOPRIL [Concomitant]
     Indication: HYPERTENSION
     Dosage: 150MG THREE TIMES PER DAY
     Route: 065
     Dates: start: 19980101
  4. ZANTAC [Concomitant]
     Dosage: 150MG PER DAY
     Route: 065
     Dates: start: 20000101
  5. LIPITOR [Concomitant]
     Dosage: 20MG PER DAY
     Route: 065
     Dates: start: 19980101
  6. PACERONE [Concomitant]
     Indication: ATRIAL FIBRILLATION
     Dosage: 200MG PER DAY
     Route: 065
     Dates: start: 20000101
  7. PROSCAR [Concomitant]
     Dosage: 5MG PER DAY
     Route: 065
     Dates: start: 20010101
  8. LANOXIN [Concomitant]
     Dosage: .125MG ALTERNATE DAYS
     Route: 065
     Dates: start: 20010101
  9. VITAMINE B12 [Concomitant]
     Dates: start: 20010101
  10. TYLENOL (CAPLET) [Concomitant]
     Dates: start: 20040101
  11. MULTI-VITAMIN [Concomitant]
     Dates: start: 20010101

REACTIONS (4)
  - DIPLOPIA [None]
  - EYE IRRITATION [None]
  - PHOTOPHOBIA [None]
  - VISUAL DISTURBANCE [None]
